FAERS Safety Report 14331710 (Version 25)
Quarter: 2021Q3

REPORT INFORMATION
  Report Type: Spontaneous
  Country: GB (occurrence: GB)
  Receive Date: 20171228
  Receipt Date: 20210806
  Transmission Date: 20211014
  Serious: Yes (Other)
  Sender: FDA-Public Use
  Company Number: GB-JNJFOC-20171218520

PATIENT
  Age: 73 Year
  Sex: Female
  Weight: 48 kg

DRUGS (25)
  1. VELCADE [Suspect]
     Active Substance: BORTEZOMIB
     Dosage: 1.3 MG/M2, 1 CYCLE
     Route: 058
     Dates: start: 20171110, end: 20171110
  2. MELPHALAN. [Suspect]
     Active Substance: MELPHALAN
     Indication: PLASMA CELL LEUKAEMIA
     Route: 065
     Dates: start: 20171103, end: 20171103
  3. ALLOPURINOL. [Suspect]
     Active Substance: ALLOPURINOL
     Indication: PRODUCT USED FOR UNKNOWN INDICATION
     Dosage: 300 MILLIGRAM, DAILY
     Route: 065
     Dates: start: 20171104, end: 20171120
  4. DEXAMETHASONE. [Suspect]
     Active Substance: DEXAMETHASONE
     Indication: PRODUCT USED FOR UNKNOWN INDICATION
     Dosage: 20 MILLIGRAM, DAILY
     Route: 065
     Dates: start: 20171102, end: 20171106
  5. DEXAMETHASONE. [Suspect]
     Active Substance: DEXAMETHASONE
     Route: 065
  6. PREDNISONE. [Suspect]
     Active Substance: PREDNISONE
     Indication: PLASMA CELL LEUKAEMIA
     Dosage: 70 MILLIGRAM, ONCE A DAY
     Route: 065
     Dates: start: 20171103, end: 20171103
  7. MELPHALAN. [Suspect]
     Active Substance: MELPHALAN
     Dosage: 14 MILLIGRAM, DAILY?1 CYCLE
     Route: 065
     Dates: start: 20171107, end: 20171110
  8. ALLOPURINOL. [Suspect]
     Active Substance: ALLOPURINOL
     Dosage: 300 MILLIGRAM, QD
     Route: 065
     Dates: start: 20171120
  9. SODIUM CHLORIDE. [Suspect]
     Active Substance: SODIUM CHLORIDE
     Route: 041
     Dates: start: 20171107, end: 201711
  10. VELCADE [Suspect]
     Active Substance: BORTEZOMIB
     Dosage: 1.3 MG/M2, 1 CYCLE
     Route: 058
     Dates: start: 20171103, end: 20171103
  11. SODIUM CHLORIDE. [Suspect]
     Active Substance: SODIUM CHLORIDE
     Indication: MEDICATION DILUTION
     Dosage: 1 CYCLE
     Route: 041
     Dates: start: 20171103, end: 20171106
  12. SODIUM CHLORIDE. [Suspect]
     Active Substance: SODIUM CHLORIDE
     Dosage: 1 CYCLE
     Route: 041
     Dates: start: 20171110, end: 20171114
  13. SODIUM CHLORIDE. [Suspect]
     Active Substance: SODIUM CHLORIDE
     Dosage: 1 CYCLE
     Route: 042
     Dates: start: 20171106, end: 20171106
  14. PREDNISONE. [Suspect]
     Active Substance: PREDNISONE
     Dosage: 70 MILLIGRAM, QD, 1 CYCLE
     Route: 065
     Dates: start: 20171106, end: 20171106
  15. SERTRALINE [Suspect]
     Active Substance: SERTRALINE HYDROCHLORIDE
     Indication: PRODUCT USED FOR UNKNOWN INDICATION
     Dosage: 50 MILLIGRAM, ONCE A DAY
     Route: 065
  16. METOCLOPRAMIDE. [Suspect]
     Active Substance: METOCLOPRAMIDE
     Indication: PRODUCT USED FOR UNKNOWN INDICATION
     Dosage: 10 MILLIGRAM, AS NECESSARY
     Route: 065
  17. VELCADE [Suspect]
     Active Substance: BORTEZOMIB
     Dosage: 1.3 MG/M2, 1 CYCLE
     Route: 058
     Dates: start: 20171106, end: 20171106
  18. DUROGESIC D?TRANS [Suspect]
     Active Substance: FENTANYL
     Indication: PRODUCT USED FOR UNKNOWN INDICATION
     Route: 062
     Dates: start: 20171108
  19. FENTANYL CITRATE. [Suspect]
     Active Substance: FENTANYL CITRATE
     Indication: PRODUCT USED FOR UNKNOWN INDICATION
     Route: 055
     Dates: start: 20171108
  20. OMEPRAZOLE. [Suspect]
     Active Substance: OMEPRAZOLE
     Indication: PRODUCT USED FOR UNKNOWN INDICATION
     Dosage: 20 MILLIGRAM, ONCE A DAY, UNSPECIFIED, EVERY MORNING
     Route: 048
  21. RAMIPRIL. [Suspect]
     Active Substance: RAMIPRIL
     Indication: PRODUCT USED FOR UNKNOWN INDICATION
     Dosage: 10 MILLIGRAM, ONCE A DAY, DOSAGE FORM: UNSPECIFIED, EVERY MORNING
     Route: 065
  22. VELCADE [Suspect]
     Active Substance: BORTEZOMIB
     Route: 058
     Dates: start: 20171110, end: 20171114
  23. VELCADE [Suspect]
     Active Substance: BORTEZOMIB
     Indication: PLASMA CELL LEUKAEMIA
     Route: 058
     Dates: start: 20171103, end: 20171103
  24. VELCADE [Suspect]
     Active Substance: BORTEZOMIB
     Route: 058
     Dates: start: 20171107, end: 201711
  25. BENDROFLUMETHIAZIDE [Suspect]
     Active Substance: BENDROFLUMETHIAZIDE
     Indication: PRODUCT USED FOR UNKNOWN INDICATION
     Dosage: 2.5 MILLIGRAM, ONCE A DAY,
     Route: 065

REACTIONS (11)
  - Abnormal behaviour [Recovered/Resolved]
  - Disorientation [Recovered/Resolved]
  - Product use in unapproved indication [Unknown]
  - Disturbance in social behaviour [Recovered/Resolved]
  - Confusional state [Recovered/Resolved]
  - Emotional distress [Not Recovered/Not Resolved]
  - Hallucination [Recovered/Resolved]
  - Paranoia [Recovered/Resolved]
  - Off label use [Unknown]
  - Incorrect route of product administration [Unknown]
  - Agitation [Recovered/Resolved]

NARRATIVE: CASE EVENT DATE: 20171103
